FAERS Safety Report 9575009 (Version 1)
Quarter: 2013Q4

REPORT INFORMATION
  Report Type: Spontaneous
  Country: GB (occurrence: GB)
  Receive Date: 20131001
  Receipt Date: 20131001
  Transmission Date: 20140711
  Serious: Yes (Other)
  Sender: FDA-Public Use
  Company Number: PHHY2013GB107018

PATIENT
  Age: 45 Year
  Sex: Male
  Weight: 44 kg

DRUGS (4)
  1. FERROUS SULFATE [Suspect]
     Dosage: 200 MG, TID
  2. LANSOPRAZOLE [Interacting]
     Dosage: 30 MG, QD
  3. AMOXICILLIN-CLAVULANIC ACID [Interacting]
  4. CIPROFLOXACIN [Interacting]

REACTIONS (6)
  - Hypozincaemia [Unknown]
  - Erythema [Unknown]
  - Alopecia [Unknown]
  - Impaired healing [Unknown]
  - Malabsorption [Unknown]
  - Drug effect incomplete [Unknown]
